FAERS Safety Report 19872073 (Version 1)
Quarter: 2021Q3

REPORT INFORMATION
  Report Type: Spontaneous
  Country: US (occurrence: US)
  Receive Date: 20210923
  Receipt Date: 20210923
  Transmission Date: 20211014
  Serious: No
  Sender: FDA-Public Use
  Company Number: None

PATIENT
  Age: 57 Year
  Sex: Male
  Weight: 28 kg

DRUGS (1)
  1. BARICITNIB (BARICITINIB 2MG TAB) [Suspect]
     Active Substance: BARICITINIB
     Route: 048
     Dates: start: 20210902, end: 20210908

REACTIONS (7)
  - Urinary tract infection [None]
  - Bacteroides bacteraemia [None]
  - Blood culture positive [None]
  - General physical health deterioration [None]
  - Bacteraemia [None]
  - Coagulopathy [None]
  - Sepsis [None]

NARRATIVE: CASE EVENT DATE: 20210909
